FAERS Safety Report 18638970 (Version 2)
Quarter: 2022Q3

REPORT INFORMATION
  Report Type: Spontaneous
  Country: US (occurrence: US)
  Receive Date: 20201218
  Receipt Date: 20220706
  Transmission Date: 20221026
  Serious: No
  Sender: FDA-Public Use
  Company Number: US-PFIZER INC-2020474774

PATIENT
  Age: 78 Year
  Sex: Female

DRUGS (3)
  1. AROMASIN [Interacting]
     Active Substance: EXEMESTANE
     Dosage: 50 MG, 1X/DAY
     Route: 048
  2. AROMASIN [Interacting]
     Active Substance: EXEMESTANE
     Dosage: 50 MG, DAILY (2 TAB OF 25 MG (50 MG TOTAL) DAILY)
     Route: 048
  3. PRIMIDONE [Interacting]
     Active Substance: PRIMIDONE
     Dosage: UNK

REACTIONS (1)
  - Drug interaction [Unknown]
